FAERS Safety Report 8422847-7 (Version None)
Quarter: 2012Q2

REPORT INFORMATION
  Report Type: 
  Country: None (occurrence: None)
  Receive Date: 20120608
  Receipt Date: 20120531
  Transmission Date: 20120825
  Serious: Yes (Hospitalization)
  Sender: FDA-Public Use
  Company Number: US-GLAXOSMITHKLINE-A0799491A

PATIENT
  Age: 53 Year
  Sex: Male
  Weight: 91.8 kg

DRUGS (10)
  1. XANAX [Concomitant]
  2. ENALAPRIL MALEATE [Concomitant]
  3. METOPROLOL SUCCINATE [Concomitant]
  4. HYDROCHLOROTHIAZIDE [Concomitant]
  5. ACCUPRIL [Concomitant]
  6. GEMFIBROZIL [Concomitant]
  7. AVANDIA [Suspect]
     Indication: TYPE 2 DIABETES MELLITUS
     Dosage: 4MG PER DAY
     Route: 048
     Dates: start: 20020806, end: 20060701
  8. LOPRESSOR [Concomitant]
  9. ALBUTEROL [Concomitant]
  10. PEPCID [Concomitant]

REACTIONS (1)
  - MYOCARDIAL INFARCTION [None]
